FAERS Safety Report 5446677-3 (Version None)
Quarter: 2007Q3

REPORT INFORMATION
  Report Type: 
  Country: None (occurrence: None)
  Receive Date: 20070907
  Receipt Date: 20070829
  Transmission Date: 20080115
  Serious: Yes (Other)
  Sender: FDA-Public Use
  Company Number: CA-PFIZER INC-2007062776

PATIENT
  Sex: Male

DRUGS (2)
  1. NORVASC [Suspect]
     Indication: BLOOD PRESSURE INCREASED
     Route: 048
  2. NORVASC [Suspect]
     Route: 048

REACTIONS (2)
  - HYPOAESTHESIA [None]
  - PERIPHERAL COLDNESS [None]
